FAERS Safety Report 10261939 (Version 1)
Quarter: 2014Q2

REPORT INFORMATION
  Report Type: Spontaneous
  Country: BR (occurrence: BR)
  Receive Date: 20140626
  Receipt Date: 20140626
  Transmission Date: 20141212
  Serious: Yes (Other)
  Sender: FDA-Public Use
  Company Number: BR-BRISTOL-MYERS SQUIBB COMPANY-21106489

PATIENT
  Age: 55 Year
  Sex: Male
  Weight: 65 kg

DRUGS (3)
  1. EFAVIRENZ TABS [Suspect]
     Indication: HIV INFECTION
     Route: 048
     Dates: start: 2005
  2. LAMIVUDINE [Concomitant]
     Dates: start: 2005
  3. TENOFOVIR [Concomitant]
     Dates: start: 2005

REACTIONS (2)
  - Hepatitis C [Not Recovered/Not Resolved]
  - Hypertension [Not Recovered/Not Resolved]
